FAERS Safety Report 8067245-3 (Version None)
Quarter: 2012Q1

REPORT INFORMATION
  Report Type: 
  Country: None (occurrence: None)
  Receive Date: 20120124
  Receipt Date: 20120117
  Transmission Date: 20120608
  Serious: Yes (Other)
  Sender: FDA-Public Use
  Company Number: US-GLAXOSMITHKLINE-A0962531A

PATIENT
  Sex: Male

DRUGS (1)
  1. VOTRIENT [Suspect]
     Indication: RENAL CANCER
     Dosage: 600MG PER DAY
     Route: 048

REACTIONS (6)
  - FATIGUE [None]
  - PAIN [None]
  - ADRENAL CARCINOMA [None]
  - NIGHT SWEATS [None]
  - MUSCULAR WEAKNESS [None]
  - HYPOTHYROIDISM [None]
